FAERS Safety Report 23073309 (Version 1)
Quarter: 2023Q4

REPORT INFORMATION
  Report Type: Spontaneous
  Country: US (occurrence: US)
  Receive Date: 20231017
  Receipt Date: 20231017
  Transmission Date: 20240109
  Serious: No
  Sender: FDA-Public Use
  Company Number: US-drreddys-SPO/USA/23/0178012

PATIENT
  Age: 23 Year
  Sex: Female

DRUGS (1)
  1. ACCUTANE [Suspect]
     Active Substance: ISOTRETINOIN
     Indication: Product used for unknown indication
     Dosage: RMA ISSUE DATE: 18 APRIL 2023 01:06:36 PM, 15 MAY 2023 01:49:24 PM, 11 JULY 2023 09:01:29 AM, 10 AUG

REACTIONS (1)
  - Adverse drug reaction [Unknown]
